FAERS Safety Report 6906024-4 (Version None)
Quarter: 2010Q3

REPORT INFORMATION
  Report Type: 
  Country: None (occurrence: None)
  Receive Date: 20100804
  Receipt Date: 20100726
  Transmission Date: 20110219
  Serious: Yes (Hospitalization, Other)
  Sender: FDA-Public Use
  Company Number: PHHY2010FR50099

PATIENT
  Sex: Male

DRUGS (8)
  1. EXELON [Suspect]
     Dosage: 4.6 MG DAILY
     Route: 062
     Dates: start: 20090101, end: 20100630
  2. APROVEL [Concomitant]
  3. AMLOR [Concomitant]
  4. DAKTARIN [Concomitant]
  5. FORLAX [Concomitant]
  6. KEPPRA [Concomitant]
  7. PLAVIX [Concomitant]
  8. TAHOR [Concomitant]

REACTIONS (4)
  - BLOOD PRESSURE DECREASED [None]
  - BRADYCARDIA [None]
  - HYPOGLYCAEMIA [None]
  - PSYCHOMOTOR RETARDATION [None]
